FAERS Safety Report 8554733-6 (Version None)
Quarter: 2012Q3

REPORT INFORMATION
  Report Type: 
  Country: None (occurrence: None)
  Receive Date: 20120731
  Receipt Date: 20120131
  Transmission Date: 20120928
  Serious: Yes (Other)
  Sender: FDA-Public Use
  Company Number: CHPA2012US013327

PATIENT
  Sex: Female

DRUGS (1)
  1. EXCEDRIN EXTRA STRENGTH TABLETS [Suspect]
     Dosage: UNK, UNK
     Route: 048

REACTIONS (2)
  - HAEMORRHAGE [None]
  - BLOOD POTASSIUM DECREASED [None]
